FAERS Safety Report 7561552-6 (Version None)
Quarter: 2011Q2

REPORT INFORMATION
  Report Type: 
  Country: None (occurrence: None)
  Receive Date: 20110621
  Receipt Date: 20110317
  Transmission Date: 20111010
  Serious: No
  Sender: FDA-Public Use
  Company Number: US-ASTRAZENECA-2011SE15392

PATIENT
  Sex: Female

DRUGS (1)
  1. PULMICORT FLEXHALER [Suspect]
     Dosage: TOTAL DAILY DOSAGE: 360 MCG, FREQUENCY: TWO TIMES A DAY. PATIENT TOOK 4 PUFFS AT ONE TIME
     Route: 055

REACTIONS (3)
  - MALAISE [None]
  - PARAESTHESIA [None]
  - HYPOAESTHESIA [None]
